FAERS Safety Report 9156491 (Version 1)
Quarter: 2013Q1

REPORT INFORMATION
  Report Type: Spontaneous
  Country: US (occurrence: None)
  Receive Date: 20130307
  Receipt Date: 20130307
  Transmission Date: 20140127
  Serious: Yes (Hospitalization, Other)
  Sender: FDA-Public Use
  Company Number: None

PATIENT
  Sex: 0

DRUGS (1)
  1. HYDROMORPHONE [Suspect]
     Dosage: LOT NUMBER 130153F EXPIRATION DATE 01-JAN-2014.

REACTIONS (1)
  - Drug ineffective [None]
